FAERS Safety Report 10044671 (Version 2)
Quarter: 2014Q2

REPORT INFORMATION
  Report Type: Report from Study
  Country: US (occurrence: US)
  Receive Date: 20140328
  Receipt Date: 20140512
  Transmission Date: 20141212
  Serious: Yes (Hospitalization, Other)
  Sender: FDA-Public Use
  Company Number: US-PFIZER INC-2014086782

PATIENT
  Age: 18 Year
  Sex: Male
  Weight: 136.2 kg

DRUGS (6)
  1. IBUPROFEN [Suspect]
     Dosage: 200 MG, UNK, 50 TABLETS
     Route: 048
     Dates: start: 20140316
  2. DIPHENHYDRAMINE [Suspect]
     Dosage: 25 MG, UNK, 3 TABLETS
     Route: 048
     Dates: start: 20140316
  3. ACETAMINOPHEN [Suspect]
     Dosage: 100 GELCAPS
     Route: 048
     Dates: start: 20140316
  4. NYQUIL [Suspect]
     Dosage: 6 DF, UNK
     Route: 048
     Dates: start: 20140316
  5. DOXYLAMINE [Suspect]
     Dosage: UNK
     Route: 048
     Dates: start: 20140316
  6. PARACETAMOL, OXYCODONE HYDROCHLORIDE [Concomitant]
     Indication: PROCEDURAL PAIN
     Route: 065

REACTIONS (4)
  - Overdose [Recovered/Resolved]
  - Intentional self-injury [Recovered/Resolved]
  - Abdominal pain [Recovered/Resolved]
  - Vomiting [Recovered/Resolved]
